FAERS Safety Report 9508358 (Version 1)
Quarter: 2013Q3

REPORT INFORMATION
  Report Type: Spontaneous
  Country: US (occurrence: None)
  Receive Date: 20130906
  Receipt Date: 20130906
  Transmission Date: 20140515
  Serious: Yes (Other)
  Sender: FDA-Public Use
  Company Number: None

PATIENT
  Age: 82 Year
  Sex: Male
  Weight: 73.94 kg

DRUGS (6)
  1. CLOPIDOGREL [Suspect]
     Indication: ANTICOAGULANT THERAPY
  2. LISINOPRIL [Concomitant]
  3. AMLODIPINE [Concomitant]
  4. METOPROLOL [Suspect]
     Route: 048
     Dates: start: 20120912, end: 20130827
  5. PRAVASTATIN SODIUM [Concomitant]
  6. FOLIC ACID [Concomitant]

REACTIONS (1)
  - Diarrhoea [None]
